FAERS Safety Report 6513208-6 (Version None)
Quarter: 2009Q4

REPORT INFORMATION
  Report Type: 
  Country: None (occurrence: None)
  Receive Date: 20091215
  Receipt Date: 20081024
  Transmission Date: 20100525
  Serious: Yes (Other)
  Sender: FDA-Public Use
  Company Number: 08-001746

PATIENT
  Age: 60 Year
  Sex: Female

DRUGS (10)
  1. FEMHRT [Suspect]
     Indication: HORMONE REPLACEMENT THERAPY
     Dates: start: 20021001, end: 20030901
  2. MEDROXYPROGESTERONE ACETATE [Suspect]
     Indication: HORMONE REPLACEMENT THERAPY
     Dates: start: 19981216, end: 19991201
  3. ESTRATEST H.S. [Suspect]
     Indication: HORMONE REPLACEMENT THERAPY
     Dates: start: 19981216, end: 20021001
  4. PREMPHASE (PREMARIN;CYCRIN 14/14) [Suspect]
     Indication: HORMONE REPLACEMENT THERAPY
     Dates: start: 19980731, end: 19981201
  5. PROVERA [Suspect]
     Indication: HORMONE REPLACEMENT THERAPY
     Dates: start: 19960716, end: 19970701
  6. PROVERA [Suspect]
     Indication: HORMONE REPLACEMENT THERAPY
     Dates: start: 19991206, end: 20021001
  7. PREMARIN [Suspect]
     Indication: HORMONE REPLACEMENT THERAPY
     Dates: start: 19960716, end: 19970701
  8. PREMPRO [Suspect]
     Indication: HORMONE REPLACEMENT THERAPY
     Dates: start: 19960506, end: 19960701
  9. PREMPRO [Suspect]
     Indication: HORMONE REPLACEMENT THERAPY
     Dates: start: 19970727, end: 19980701
  10. PREMPRO [Suspect]
     Indication: HORMONE REPLACEMENT THERAPY
     Dates: start: 19930901, end: 20040224

REACTIONS (1)
  - BREAST CANCER [None]
